FAERS Safety Report 7911166-0 (Version None)
Quarter: 2011Q4

REPORT INFORMATION
  Report Type: 
  Country: None (occurrence: None)
  Receive Date: 20111110
  Receipt Date: 20111110
  Transmission Date: 20120403
  Serious: Yes (Other)
  Sender: FDA-Public Use
  Company Number: None

PATIENT
  Age: 36 Year
  Sex: Male

DRUGS (1)
  1. DEPO-MEDROL [Suspect]

REACTIONS (3)
  - INJECTION SITE INFECTION [None]
  - INJECTION [None]
  - INJECTION SITE MASS [None]
